FAERS Safety Report 23539022 (Version 3)
Quarter: 2024Q1

REPORT INFORMATION
  Report Type: Spontaneous
  Country: TW (occurrence: TW)
  Receive Date: 20240219
  Receipt Date: 20240307
  Transmission Date: 20240410
  Serious: Yes (Death, Other)
  Sender: FDA-Public Use
  Company Number: TW-BAYER-2024A025867

PATIENT
  Age: 87 Year
  Sex: Male

DRUGS (1)
  1. XOFIGO [Suspect]
     Active Substance: RADIUM RA-223 DICHLORIDE
     Indication: Hormone-refractory prostate cancer
     Dosage: 4 TIMES IN TOTAL
     Dates: start: 20231212, end: 20240109

REACTIONS (2)
  - Death [Fatal]
  - Pneumonia [None]

NARRATIVE: CASE EVENT DATE: 20240118
